FAERS Safety Report 13912919 (Version 1)
Quarter: 2017Q3

REPORT INFORMATION
  Report Type: Spontaneous
  Country: US (occurrence: US)
  Receive Date: 20170828
  Receipt Date: 20170828
  Transmission Date: 20171127
  Serious: No
  Sender: FDA-Public Use
  Company Number: US-SUNOVION-2016SUN003528

PATIENT

DRUGS (7)
  1. LATUDA [Suspect]
     Active Substance: LURASIDONE HYDROCHLORIDE
     Dosage: UNK
     Route: 048
  2. RITALIN [Concomitant]
     Active Substance: METHYLPHENIDATE HYDROCHLORIDE
     Dosage: 60 MG, UNK
  3. LATUDA [Suspect]
     Active Substance: LURASIDONE HYDROCHLORIDE
     Dosage: 120 MG, QD
     Route: 048
  4. CLONAZEPAM. [Concomitant]
     Active Substance: CLONAZEPAM
     Dosage: 2 MG, AS NECESSARY
  5. LATUDA [Suspect]
     Active Substance: LURASIDONE HYDROCHLORIDE
     Indication: BIPOLAR I DISORDER
     Dosage: 40 MG, QD
     Route: 048
  6. OLANZAPINE. [Concomitant]
     Active Substance: OLANZAPINE
  7. LITHIUM. [Concomitant]
     Active Substance: LITHIUM
     Dosage: 1000 MG, UNK

REACTIONS (5)
  - Drug ineffective [Unknown]
  - Libido decreased [Unknown]
  - Depression [Unknown]
  - Bipolar I disorder [Unknown]
  - Weight decreased [Unknown]
